FAERS Safety Report 23723002 (Version 1)
Quarter: 2024Q2

REPORT INFORMATION
  Report Type: Spontaneous
  Country: CN (occurrence: CN)
  Receive Date: 20240409
  Receipt Date: 20240409
  Transmission Date: 20240716
  Serious: Yes (Other)
  Sender: FDA-Public Use
  Company Number: CN-PFIZER INC-PV202400045496

PATIENT
  Age: 81 Year
  Sex: Male

DRUGS (3)
  1. NIRMATRELVIR\RITONAVIR [Interacting]
     Active Substance: NIRMATRELVIR\RITONAVIR
     Indication: Antiviral treatment
     Dosage: [NIRMATRELVIR 300MG]/[RITONAVIR 100MG]; 2X/DAY
     Route: 048
     Dates: start: 20240304, end: 20240309
  2. ATORVASTATIN CALCIUM [Interacting]
     Active Substance: ATORVASTATIN CALCIUM
     Indication: Lipids abnormal
     Dosage: 20 MG, 1X/DAY
     Route: 048
     Dates: start: 20240303, end: 20240317
  3. CEFTIZOXIME [Concomitant]
     Active Substance: CEFTIZOXIME
     Indication: Inflammation
     Dosage: UNK
     Dates: start: 20240303

REACTIONS (3)
  - Drug interaction [Unknown]
  - Drug level increased [Unknown]
  - Hepatic function abnormal [Recovering/Resolving]

NARRATIVE: CASE EVENT DATE: 20240301
